FAERS Safety Report 5248302-3 (Version None)
Quarter: 2007Q1

REPORT INFORMATION
  Report Type: 
  Country: None (occurrence: None)
  Receive Date: 20070227
  Receipt Date: 20070214
  Transmission Date: 20070707
  Serious: Yes (Other)
  Sender: FDA-Public Use
  Company Number: CA-SHR-CA-2007-005389

PATIENT
  Age: 51 Year
  Sex: Female

DRUGS (5)
  1. BETASERON [Suspect]
     Indication: RELAPSING-REMITTING MULTIPLE SCLEROSIS
     Dosage: 8 MIU, EVERY 2D
     Route: 058
     Dates: start: 19960319
  2. BACLOFEN [Concomitant]
     Indication: MUSCLE SPASMS
     Dosage: 10 MG, 2X/DAY
     Route: 048
  3. TEGRETOL [Concomitant]
     Dosage: 100 MG, 2X/DAY
     Route: 048
  4. CALCIUM [Concomitant]
  5. MOGADON [Concomitant]
     Dosage: 10 MG, BED T.
     Route: 048

REACTIONS (3)
  - BACK PAIN [None]
  - PNEUMOTHORAX [None]
  - PULMONARY FIBROSIS [None]
